FAERS Safety Report 14881129 (Version 1)
Quarter: 2018Q2

REPORT INFORMATION
  Report Type: Other
  Country: None (occurrence: US)
  Receive Date: 20180511
  Receipt Date: 20180511
  Transmission Date: 20180711
  Serious: Yes (Death)
  Sender: FDA-Public Use
  Company Number: US-B. BRAUN MEDICAL INC.-2047614

PATIENT
  Age: 9 Year
  Sex: Female

DRUGS (1)
  1. CEFTRIAXONE FOR INJECTION AND DEXTROSE INJECTION 0264-3153-11 [Suspect]
     Active Substance: CEFTRIAXONE SODIUM

REACTIONS (3)
  - Red blood cell sickled cells present [None]
  - Hypersplenism [None]
  - Red blood cell agglutination [None]
